FAERS Safety Report 26019672 (Version 1)
Quarter: 2025Q4

REPORT INFORMATION
  Report Type: Spontaneous
  Country: CN (occurrence: CN)
  Receive Date: 20251110
  Receipt Date: 20251110
  Transmission Date: 20260118
  Serious: Yes (Hospitalization, Other)
  Sender: PFIZER
  Company Number: CN-PFIZER INC-PV202500130949

PATIENT
  Age: 9 Year
  Sex: Female
  Weight: 26 kg

DRUGS (2)
  1. METHOTREXATE SODIUM [Suspect]
     Active Substance: METHOTREXATE SODIUM
     Indication: Chemotherapy
     Dosage: 30 ML, 1X/DAY
     Route: 041
     Dates: start: 20251101, end: 20251101
  2. SODIUM CHLORIDE [Concomitant]
     Active Substance: SODIUM CHLORIDE
     Indication: Vehicle solution use
     Dosage: 525 ML, 1X/DAY
     Route: 041
     Dates: start: 20251101, end: 20251101

REACTIONS (1)
  - Drug level increased [Recovering/Resolving]

NARRATIVE: CASE EVENT DATE: 20251101
